FAERS Safety Report 23660069 (Version 1)
Quarter: 2024Q1

REPORT INFORMATION
  Report Type: Spontaneous
  Country: US (occurrence: US)
  Receive Date: 20240321
  Receipt Date: 20240321
  Transmission Date: 20240409
  Serious: No
  Sender: FDA-Public Use
  Company Number: US-VISTAPHARM-2024-US-006759

PATIENT
  Age: 82 Year
  Sex: Female
  Weight: 48.53 kg

DRUGS (1)
  1. SUCRALFATE ORAL SUSPENSION [Suspect]
     Active Substance: SUCRALFATE
     Indication: Gastrooesophageal reflux disease
     Dosage: TWICE DAILY
     Route: 048
     Dates: start: 20240130, end: 20240130

REACTIONS (2)
  - Somnolence [Recovered/Resolved]
  - Product use in unapproved indication [Recovered/Resolved]

NARRATIVE: CASE EVENT DATE: 20240130
